FAERS Safety Report 12356332 (Version 1)
Quarter: 2016Q2

REPORT INFORMATION
  Report Type: Spontaneous
  Country: GB (occurrence: GB)
  Receive Date: 20160511
  Receipt Date: 20160511
  Transmission Date: 20160815
  Serious: No
  Sender: FDA-Public Use
  Company Number: GB-QOL MEDICAL, LLC-1051947

PATIENT
  Age: 17 Year
  Sex: Male

DRUGS (1)
  1. SUCRAID [Suspect]
     Active Substance: SACROSIDASE
     Indication: SUCRASE-ISOMALTASE DEFICIENCY
     Dates: start: 20140601

REACTIONS (12)
  - Flatulence [Recovered/Resolved]
  - Pollakiuria [None]
  - Product taste abnormal [None]
  - Product odour abnormal [None]
  - Headache [None]
  - Fatigue [None]
  - Malaise [None]
  - Abdominal pain [Recovered/Resolved]
  - Product colour issue [None]
  - Thirst [None]
  - Abdominal distension [Recovered/Resolved]
  - Small intestinal bacterial overgrowth [Recovered/Resolved]

NARRATIVE: CASE EVENT DATE: 20150923
